FAERS Safety Report 10225387 (Version 2)
Quarter: 2016Q1

REPORT INFORMATION
  Report Type: Spontaneous
  Country: US (occurrence: US)
  Receive Date: 20140609
  Receipt Date: 20160314
  Transmission Date: 20160525
  Serious: Yes (Hospitalization)
  Sender: FDA-Public Use
  Company Number: US-BAYER-2014-083070

PATIENT
  Age: 20 Year
  Sex: Female
  Weight: 92.97 kg

DRUGS (9)
  1. MIRENA [Suspect]
     Active Substance: LEVONORGESTREL
     Indication: CONTRACEPTION
     Dosage: 20 MCG/24HR, CONT
     Route: 015
     Dates: start: 20100113, end: 20110103
  2. FLUOXETINE [Concomitant]
     Active Substance: FLUOXETINE HYDROCHLORIDE
     Indication: ANXIETY
     Dosage: UNK
     Dates: start: 2006
  3. MACROBID [Concomitant]
     Active Substance: NITROFURANTOIN\NITROFURANTOIN MONOHYDRATE
  4. ZOFRAN [Concomitant]
     Active Substance: ONDANSETRON HYDROCHLORIDE
  5. EPINEPHRINE. [Concomitant]
     Active Substance: EPINEPHRINE
  6. AMOXICILLIN. [Concomitant]
     Active Substance: AMOXICILLIN
  7. PHENERGAN W/ CODEINE [Concomitant]
     Active Substance: CODEINE PHOSPHATE\PROMETHAZINE HYDROCHLORIDE
  8. ANUSOL-HC [HYDROCORTISONE ACETATE] [Concomitant]
     Indication: HAEMORRHOIDS
  9. MICRONOR [Concomitant]
     Active Substance: NORETHINDRONE

REACTIONS (5)
  - Uterine perforation [Not Recovered/Not Resolved]
  - Procedural pain [None]
  - Post procedural discomfort [None]
  - Injury [Not Recovered/Not Resolved]
  - Medical device pain [None]

NARRATIVE: CASE EVENT DATE: 201010
